FAERS Safety Report 8128548 (Version 4)
Quarter: 2012Q4

REPORT INFORMATION
  Report Type: Report from Study
  Country: JP (occurrence: JP)
  Receive Date: 20110909
  Receipt Date: 20120906
  Transmission Date: 20130627
  Serious: Yes (Other)
  Sender: FDA-Public Use
  Company Number: JP-PFIZER INC-2011208793

PATIENT
  Age: 72 Year
  Sex: Female
  Weight: 51.6 kg

DRUGS (4)
  1. SILDENAFIL CITRATE [Suspect]
     Indication: PULMONARY HYPERTENSION
     Dosage: 20 mg, 2x/day
     Route: 048
     Dates: start: 20100925, end: 20100926
  2. SILDENAFIL CITRATE [Suspect]
     Dosage: 20 mg, 1x/day
     Route: 048
     Dates: start: 20100927, end: 201011
  3. AIROMIR [Concomitant]
     Dosage: UNK
     Route: 055
  4. QVAR [Concomitant]
     Dosage: UNK
     Route: 055

REACTIONS (4)
  - Visual impairment [Recovered/Resolved]
  - Dizziness [Recovered/Resolved]
  - Palpitations [Recovering/Resolving]
  - Bronchitis [Recovering/Resolving]
